FAERS Safety Report 9725002 (Version 3)
Quarter: 2014Q1

REPORT INFORMATION
  Report Type: Spontaneous
  Country: GB (occurrence: GB)
  Receive Date: 20131203
  Receipt Date: 20140314
  Transmission Date: 20141002
  Serious: Yes (Death, Other)
  Sender: FDA-Public Use
  Company Number: GB-ASTRAZENECA-2013SE86537

PATIENT
  Age: 65 Year
  Sex: Female
  Weight: 68 kg

DRUGS (6)
  1. ANASTROZOLE [Suspect]
     Indication: BREAST CANCER
     Route: 048
     Dates: start: 20130726
  2. AMLODIPINE [Concomitant]
     Route: 048
     Dates: start: 20130708, end: 20131017
  3. ATENOLOL [Concomitant]
     Route: 048
     Dates: start: 20130708, end: 20131017
  4. IBUPROFEN [Concomitant]
     Dates: start: 20130822, end: 20130919
  5. INDAPAMIDE [Concomitant]
     Route: 048
     Dates: start: 20130801, end: 20130829
  6. RAMIPRIL [Concomitant]
     Route: 048
     Dates: start: 20130821

REACTIONS (3)
  - Ischaemic stroke [Fatal]
  - Brain oedema [Fatal]
  - Hair growth abnormal [Unknown]
